FAERS Safety Report 9343231 (Version 1)
Quarter: 2013Q2

REPORT INFORMATION
  Report Type: Spontaneous
  Country: CN (occurrence: CN)
  Receive Date: 20130611
  Receipt Date: 20130611
  Transmission Date: 20140414
  Serious: Yes (Other)
  Sender: FDA-Public Use
  Company Number: CN-ASTRAZENECA-2013SE41382

PATIENT
  Age: 21185 Day
  Sex: Male
  Weight: 61 kg

DRUGS (1)
  1. FELODIPINE [Suspect]
     Indication: HYPERTENSION
     Route: 048
     Dates: start: 20121013, end: 20121115

REACTIONS (4)
  - Urinary retention [Recovering/Resolving]
  - Anuria [Recovering/Resolving]
  - Cold sweat [Recovering/Resolving]
  - Heart rate abnormal [Recovering/Resolving]
